FAERS Safety Report 4512022-0 (Version None)
Quarter: 2004Q4

REPORT INFORMATION
  Report Type: 
  Country: None (occurrence: None)
  Receive Date: 20041129
  Receipt Date: 20041117
  Transmission Date: 20050328
  Serious: Yes (Hospitalization)
  Sender: FDA-Public Use
  Company Number: 200412626DE

PATIENT
  Age: 59 Year
  Sex: Female
  Weight: 63.1 kg

DRUGS (1)
  1. TAXOTERE [Suspect]
     Indication: BREAST CANCER
     Route: 042
     Dates: start: 20041025, end: 20041025

REACTIONS (6)
  - DERMATITIS EXFOLIATIVE [None]
  - MUCOSAL INFLAMMATION [None]
  - OEDEMA PERIPHERAL [None]
  - ONYCHOLYSIS [None]
  - PAIN [None]
  - SKIN ULCER [None]
